FAERS Safety Report 8550068-6 (Version None)
Quarter: 2012Q3

REPORT INFORMATION
  Report Type: 
  Country: None (occurrence: None)
  Receive Date: 20120730
  Receipt Date: 20120720
  Transmission Date: 20120928
  Serious: Yes (Other)
  Sender: FDA-Public Use
  Company Number: US-PFIZER INC-2012176173

PATIENT
  Sex: Female
  Weight: 54 kg

DRUGS (8)
  1. NORTRIPTYLINE HCL [Suspect]
     Indication: NERVE INJURY
     Dosage: UNK
     Dates: start: 20050601, end: 20060101
  2. NORTRIPTYLINE HCL [Suspect]
     Indication: NEURALGIA
  3. FLEXERIL [Concomitant]
     Indication: ACCIDENT AT WORK
     Dosage: UNK
     Dates: start: 20050601
  4. GABAPENTIN [Suspect]
     Indication: NEURALGIA
  5. GABAPENTIN [Suspect]
     Indication: NERVE INJURY
     Dosage: UNK
     Route: 048
     Dates: start: 20061101, end: 20061101
  6. LIPITOR [Concomitant]
     Indication: BLOOD CHOLESTEROL INCREASED
     Dosage: UNK
  7. SOMA [Concomitant]
     Indication: ACCIDENT AT WORK
     Dosage: UNK
     Dates: start: 20050601
  8. PERCOCET [Concomitant]
     Indication: ACCIDENT AT WORK
     Dosage: UNK
     Dates: start: 20050601

REACTIONS (2)
  - WEIGHT INCREASED [None]
  - STEVENS-JOHNSON SYNDROME [None]
